FAERS Safety Report 8372375-2 (Version None)
Quarter: 2012Q2

REPORT INFORMATION
  Report Type: 
  Country: None (occurrence: None)
  Receive Date: 20120521
  Receipt Date: 20120515
  Transmission Date: 20120825
  Serious: Yes (Hospitalization)
  Sender: FDA-Public Use
  Company Number: US-AMGEN-USASP2012004409

PATIENT
  Age: 53 Year
  Sex: Female

DRUGS (1)
  1. ENBREL [Suspect]
     Indication: RHEUMATOID ARTHRITIS
     Dosage: 50 MG, QWK
     Dates: start: 20100719

REACTIONS (9)
  - HAEMATOMA [None]
  - HIP FRACTURE [None]
  - INJECTION SITE PRURITUS [None]
  - JOINT DISLOCATION [None]
  - INJECTION SITE ERYTHEMA [None]
  - FALL [None]
  - BLOOD COUNT ABNORMAL [None]
  - HAEMOGLOBIN DECREASED [None]
  - SINUSITIS [None]
